FAERS Safety Report 12113689 (Version 3)
Quarter: 2018Q3

REPORT INFORMATION
  Report Type: Report from Study
  Country: GB (occurrence: GB)
  Receive Date: 20160225
  Receipt Date: 20180706
  Transmission Date: 20181010
  Serious: Yes (Death, Other)
  Sender: FDA-Public Use
  Company Number: GB-ROCHE-1715715

PATIENT
  Age: 71 Year
  Sex: Male
  Weight: 111 kg

DRUGS (3)
  1. RITUXIMAB. [Suspect]
     Active Substance: RITUXIMAB
     Indication: RHEUMATOID ARTHRITIS
     Route: 042
     Dates: start: 20101216
  2. RITUXIMAB. [Suspect]
     Active Substance: RITUXIMAB
     Route: 042
     Dates: start: 20101202, end: 20120412
  3. SULFASALAZINE. [Concomitant]
     Active Substance: SULFASALAZINE

REACTIONS (4)
  - Adenocarcinoma [Fatal]
  - Basal cell carcinoma [Unknown]
  - Diabetes mellitus [Fatal]
  - Left ventricular hypertrophy [Fatal]

NARRATIVE: CASE EVENT DATE: 2015
